FAERS Safety Report 7463455-4 (Version None)
Quarter: 2011Q2

REPORT INFORMATION
  Report Type: 
  Country: None (occurrence: None)
  Receive Date: 20110506
  Receipt Date: 20110502
  Transmission Date: 20111010
  Serious: Yes (Death, Hospitalization)
  Sender: FDA-Public Use
  Company Number: Z0003342A

PATIENT
  Sex: Male
  Weight: 64 kg

DRUGS (3)
  1. PLATELETS [Concomitant]
     Indication: THROMBOCYTOPENIA
     Dosage: 1UNIT PER DAY
     Route: 042
     Dates: start: 20100301, end: 20100301
  2. PAZOPANIB [Suspect]
     Indication: NON-SMALL CELL LUNG CANCER
     Dosage: 800MG PER DAY
     Route: 048
     Dates: start: 20091208, end: 20100217
  3. PEMETREXED [Suspect]
     Indication: NON-SMALL CELL LUNG CANCER
     Dosage: 500MGM2 CYCLIC
     Route: 042
     Dates: start: 20091208, end: 20100210

REACTIONS (9)
  - VASCULITIS [None]
  - NEUTROPENIA [None]
  - BRONCHOPNEUMONIA [None]
  - BLOOD CREATININE INCREASED [None]
  - DIARRHOEA [None]
  - THROMBOCYTOPENIA [None]
  - ANAEMIA [None]
  - RENAL FAILURE ACUTE [None]
  - SEPSIS [None]
